FAERS Safety Report 20461198 (Version 1)
Quarter: 2022Q1

REPORT INFORMATION
  Report Type: Report from Study
  Country: US (occurrence: US)
  Receive Date: 20220211
  Receipt Date: 20220211
  Transmission Date: 20220424
  Serious: Yes (Hospitalization)
  Sender: FDA-Public Use
  Company Number: US-BoehringerIngelheim-2022-BI-153126

PATIENT
  Age: 70 Year
  Sex: Female

DRUGS (1)
  1. AFATINIB [Suspect]
     Active Substance: AFATINIB
     Indication: Neoplasm
     Dosage: LAST ADMINISTRATION DATE PRIOR TO EVENT: 05-MAR-2017
     Route: 048
     Dates: start: 20170228

REACTIONS (7)
  - Syncope [Unknown]
  - Dehydration [Unknown]
  - Vomiting [Unknown]
  - Diarrhoea [Unknown]
  - Blood creatinine increased [Unknown]
  - Hyponatraemia [Unknown]
  - Nausea [Unknown]

NARRATIVE: CASE EVENT DATE: 20170306
